FAERS Safety Report 11088328 (Version 2)
Quarter: 2015Q2

REPORT INFORMATION
  Report Type: Spontaneous
  Country: US (occurrence: None)
  Receive Date: 20150430
  Receipt Date: 20150520
  Transmission Date: 20150821
  Serious: Yes (Death, Hospitalization, Other)
  Sender: FDA-Public Use
  Company Number: US-H14001-15-00612

PATIENT
  Age: 56 Year

DRUGS (9)
  1. CYTARABINE (CYTARABINE) (UNKNOWN) (CYTARABINE) [Suspect]
     Active Substance: CYTARABINE
     Indication: CHRONIC LYMPHOCYTIC LEUKAEMIA
     Dosage: 3 G/M2, EVERY 12 HOURS, DAYS 2 AND 3, INTRAVENOUS (NOT OTHERWISE SPECIFIED)
     Route: 042
     Dates: start: 20130222, end: 20130225
  2. RITUXAN [Suspect]
     Active Substance: RITUXIMAB
     Indication: CHRONIC LYMPHOCYTIC LEUKAEMIA
     Dosage: 375 MG/M2, DAY 1, EVERY 21 DAYS, INTRAVENOUS (NOT OTHERWISE SPECIFIED)
     Route: 042
     Dates: start: 20130201, end: 20130226
  3. METHOTREXATE [Suspect]
     Active Substance: METHOTREXATE
     Indication: CHRONIC LYMPHOCYTIC LEUKAEMIA
     Dosage: 200 MG/KG, LOAD, DAY 1) INTRAVENOUS (NOT OTHERWISE SPECIFIED)
     Route: 042
     Dates: start: 20130222, end: 20130226
  4. CYTOXAN [Suspect]
     Active Substance: CYCLOPHOSPHAMIDE
     Dosage: 300 MG/M2, EVERY 12 HOURS X6 DAY
     Dates: start: 20130201, end: 20130221
  5. ALEMTUZUMAB [Suspect]
     Active Substance: ALEMTUZUMAB
     Indication: PRODUCT USED FOR UNKNOWN INDICATION
     Route: 042
     Dates: start: 20130321, end: 20130321
  6. DEXAMETHASONE. [Suspect]
     Active Substance: DEXAMETHASONE
     Indication: PRODUCT USED FOR UNKNOWN INDICATION
     Dosage: 40 MG, DAYS 1-4, DAYS 11-14, ORAL
     Route: 048
     Dates: start: 20130201, end: 20130221
  7. VINCRISTINE (VINCRISTINE) (UNKNOWN) (VINCRISTINE) [Suspect]
     Active Substance: VINCRISTINE
     Indication: PRODUCT USED FOR UNKNOWN INDICATION
     Dosage: 2 MG, DAY 4 AND DAY 11, INTRAVENOUS (NOT OTHERWISE SPECIFIED)
     Route: 042
     Dates: start: 20130201, end: 20130221
  8. DOXORUBICIN (DOXORUBICIN) (UNKNOWN) (DOXORUBICIN) [Suspect]
     Active Substance: DOXORUBICIN
     Indication: CHRONIC LYMPHOCYTIC LEUKAEMIA
     Dosage: 50 MG/M2, DY 4, INTRAVENOUS
     Route: 042
     Dates: start: 20130201, end: 20130221
  9. LEUCOVORIN (CALCIUM FOLINATE) (UNKNOWN) (CALCIUM FOLINATE) [Suspect]
     Active Substance: LEUCOVORIN
     Indication: CHEMOTHERAPY TOXICITY ATTENUATION
     Dosage: 25 MG, EVERY 6 HOURS X6 , ORAL
     Route: 048
     Dates: start: 20130222, end: 20130314

REACTIONS (12)
  - Mucosal inflammation [None]
  - Respiratory disorder [None]
  - Pseudohyperkalaemia [None]
  - Unresponsive to stimuli [None]
  - Herpes simplex [None]
  - Disorientation [None]
  - Malignant neoplasm progression [None]
  - Disseminated intravascular coagulation [None]
  - Multi-organ failure [None]
  - Chronic lymphocytic leukaemia [None]
  - Staphylococcal bacteraemia [None]
  - General physical health deterioration [None]

NARRATIVE: CASE EVENT DATE: 20130302
